FAERS Safety Report 8838446 (Version 2)
Quarter: 2012Q4

REPORT INFORMATION
  Report Type: 
  Country: US (occurrence: US)
  Receive Date: 20121012
  Receipt Date: 20121112
  Transmission Date: 20130627
  Serious: Yes (Hospitalization)
  Sender: FDA-Public Use
  Company Number: US-BRISTOL-MYERS SQUIBB COMPANY-17017328

PATIENT
  Age: 76 Year
  Sex: Male
  Weight: 104 kg

DRUGS (1)
  1. COUMADIN TABS 5 MG [Suspect]
     Indication: THROMBOSIS
     Dosage: 1DF = takes either 5mg or 7.5mg, depending on his INR

REACTIONS (2)
  - Post procedural infection [Unknown]
  - International normalised ratio fluctuation [Unknown]
